FAERS Safety Report 4365803-0 (Version None)
Quarter: 2004Q2

REPORT INFORMATION
  Report Type: 
  Country: None (occurrence: None)
  Receive Date: 20040521
  Receipt Date: 20040512
  Transmission Date: 20050107
  Serious: Yes (Disabling)
  Sender: FDA-Public Use
  Company Number: 2004207986DE

PATIENT
  Age: 70 Year
  Sex: Male
  Weight: 79 kg

DRUGS (4)
  1. ZYVOX [Suspect]
     Indication: INTRASPINAL ABSCESS
     Dosage: 600 MG, BID, ORAL
     Route: 048
     Dates: start: 20040303, end: 20040323
  2. LEVODOPA [Concomitant]
  3. CRIPAR (DIHYDROERGOCRYPTINE ALFA-MESILATE) [Concomitant]
  4. MORPHINE SULFATE [Concomitant]

REACTIONS (7)
  - BLOOD LACTATE DEHYDROGENASE INCREASED [None]
  - BLOOD PRESSURE INCREASED [None]
  - DIZZINESS [None]
  - DYSPNOEA EXERTIONAL [None]
  - GAMMA-GLUTAMYLTRANSFERASE INCREASED [None]
  - IRON DEFICIENCY ANAEMIA [None]
  - NAUSEA [None]
